FAERS Safety Report 12894755 (Version 3)
Quarter: 2017Q3

REPORT INFORMATION
  Report Type: Spontaneous
  Country: US (occurrence: US)
  Receive Date: 20161028
  Receipt Date: 20170828
  Transmission Date: 20171127
  Serious: Yes (Other)
  Sender: FDA-Public Use
  Company Number: US-009507513-1610USA014574

PATIENT

DRUGS (2)
  1. TEMODAR [Suspect]
     Active Substance: TEMOZOLOMIDE
     Indication: PANCREATIC NEUROENDOCRINE TUMOUR METASTATIC
     Dosage: 200 MG/M2 ONCE DAILY FOR 5 DAYS (DAYS 10-14, EVERY 28 DAYS)
     Route: 048
  2. CAPECITABINE. [Suspect]
     Active Substance: CAPECITABINE
     Indication: PANCREATIC NEUROENDOCRINE TUMOUR METASTATIC
     Dosage: 750 MG/M2, TWICE DAILY, FOR 14 DAYS (DAYS 1-14)
     Route: 048

REACTIONS (2)
  - Thrombocytopenia [Unknown]
  - Off label use [Unknown]
